FAERS Safety Report 21122574 (Version 1)
Quarter: 2022Q3

REPORT INFORMATION
  Report Type: Spontaneous
  Country: US (occurrence: US)
  Receive Date: 20220723
  Receipt Date: 20220723
  Transmission Date: 20221027
  Serious: No
  Sender: FDA-Public Use
  Company Number: US-ALEMBIC PHARMACUETICALS LIMITED-2022SCAL000317

PATIENT

DRUGS (1)
  1. LOSARTAN POTASSIUM [Suspect]
     Active Substance: LOSARTAN POTASSIUM
     Indication: Product used for unknown indication
     Dosage: 100 MG
     Route: 065

REACTIONS (3)
  - Lip pruritus [Recovered/Resolved]
  - Product substitution issue [Unknown]
  - Lip swelling [Recovered/Resolved]
